FAERS Safety Report 8250437-8 (Version None)
Quarter: 2012Q2

REPORT INFORMATION
  Report Type: 
  Country: None (occurrence: None)
  Receive Date: 20120402
  Receipt Date: 20120322
  Transmission Date: 20120825
  Serious: Yes (Other)
  Sender: FDA-Public Use
  Company Number: US-JNJFOC-20120311352

PATIENT
  Sex: Female
  Weight: 49.9 kg

DRUGS (2)
  1. REMICADE [Suspect]
     Indication: CROHN'S DISEASE
     Route: 042
     Dates: start: 19990101
  2. PROCRIT [Suspect]
     Indication: ANAEMIA OF CHRONIC DISEASE
     Route: 058
     Dates: start: 20090101, end: 20120101

REACTIONS (7)
  - MEMORY IMPAIRMENT [None]
  - CONFUSIONAL STATE [None]
  - ANAEMIA OF CHRONIC DISEASE [None]
  - EMOTIONAL DISORDER [None]
  - FEELING ABNORMAL [None]
  - DYSPNOEA [None]
  - ABASIA [None]
